FAERS Safety Report 4937623-7 (Version None)
Quarter: 2006Q1

REPORT INFORMATION
  Report Type: 
  Country: None (occurrence: None)
  Receive Date: 20060309
  Receipt Date: 20050414
  Transmission Date: 20060701
  Serious: Yes (Disabling)
  Sender: FDA-Public Use
  Company Number: US-MERCK-0504USA02461

PATIENT
  Age: 47 Year
  Sex: Female
  Weight: 95 kg

DRUGS (6)
  1. VIOXX [Suspect]
     Indication: PAIN IN EXTREMITY
     Route: 048
     Dates: start: 20040610, end: 20040829
  2. VIOXX [Suspect]
     Route: 048
     Dates: start: 20000301, end: 20020806
  3. VIOXX [Suspect]
     Route: 048
  4. VIOXX [Suspect]
     Indication: ARTHRALGIA
     Route: 048
     Dates: start: 20040610, end: 20040829
  5. VIOXX [Suspect]
     Route: 048
     Dates: start: 20000301, end: 20020806
  6. VIOXX [Suspect]
     Route: 048

REACTIONS (12)
  - ABDOMINAL PAIN [None]
  - ARTHRALGIA [None]
  - ASTHENIA [None]
  - CHANGE OF BOWEL HABIT [None]
  - EMBOLIC STROKE [None]
  - HAEMATOCHEZIA [None]
  - HYPERAESTHESIA [None]
  - NEUROPATHY PERIPHERAL [None]
  - PALPITATIONS [None]
  - PARAESTHESIA [None]
  - PELVIC PAIN [None]
  - SUPRAVENTRICULAR TACHYCARDIA [None]
